FAERS Safety Report 4917381-2 (Version None)
Quarter: 2006Q1

REPORT INFORMATION
  Report Type: 
  Country: None (occurrence: None)
  Receive Date: 20060221
  Receipt Date: 20060215
  Transmission Date: 20060701
  Serious: Yes (Other)
  Sender: FDA-Public Use
  Company Number: US-GLAXOSMITHKLINE-A0594224A

PATIENT
  Age: 27 Year
  Sex: Female

DRUGS (5)
  1. WELLBUTRIN [Suspect]
     Indication: MAJOR DEPRESSION
  2. LAMICTAL [Suspect]
     Indication: BIPOLAR DISORDER
     Dates: start: 20050209
  3. TRAZODONE [Concomitant]
  4. LEXAPRO [Concomitant]
  5. AMBIEN [Concomitant]

REACTIONS (1)
  - ABORTION INDUCED [None]
